FAERS Safety Report 13736051 (Version 2)
Quarter: 2017Q3

REPORT INFORMATION
  Report Type: Report from Study
  Country: US (occurrence: HU)
  Receive Date: 20170710
  Receipt Date: 20170719
  Transmission Date: 20171127
  Serious: Yes (Disabling, Congenital Anomaly, Other)
  Sender: FDA-Public Use
  Company Number: US-SUNOVION-2017SUN002927

PATIENT

DRUGS (4)
  1. INDACATEROL AND GLYCOPYRROLATE [Suspect]
     Active Substance: GLYCOPYRROLATE\INDACATEROL MALEATE
     Indication: EMPHYSEMA
  2. OXYGEN. [Concomitant]
     Active Substance: OXYGEN
  3. BERODUAL [Concomitant]
     Active Substance: FENOTEROL HYDROBROMIDE\IPRATROPIUM BROMIDE
  4. INDACATEROL AND GLYCOPYRROLATE [Suspect]
     Active Substance: GLYCOPYRROLATE\INDACATEROL MALEATE
     Indication: CHRONIC OBSTRUCTIVE PULMONARY DISEASE
     Dosage: UNK
     Route: 055
     Dates: start: 20170420, end: 20170622

REACTIONS (5)
  - Exercise tolerance decreased [Recovered/Resolved]
  - Dyspnoea [Recovered/Resolved]
  - Drug ineffective [Unknown]
  - Dysphonia [Recovered/Resolved]
  - Oedema peripheral [Unknown]
